FAERS Safety Report 17268049 (Version 1)
Quarter: 2020Q1

REPORT INFORMATION
  Report Type: Spontaneous
  Country: US (occurrence: US)
  Receive Date: 20191220
  Receipt Date: 20191220
  Transmission Date: 20200409
  Serious: Yes (Life-Threatening, Hospitalization)
  Sender: FDA-Public Use
  Company Number: None

PATIENT
  Age: 48 Year
  Sex: Female
  Weight: 113.4 kg

DRUGS (2)
  1. LEMTRADA [Suspect]
     Active Substance: ALEMTUZUMAB
     Dates: start: 20171106, end: 20171108
  2. LEMTRADA [Suspect]
     Active Substance: ALEMTUZUMAB
     Indication: MULTIPLE SCLEROSIS
     Route: 042
     Dates: start: 20161017, end: 20161022

REACTIONS (4)
  - Anaemia [None]
  - White blood cell count decreased [None]
  - Myelofibrosis [None]
  - Platelet count decreased [None]

NARRATIVE: CASE EVENT DATE: 20190919
